FAERS Safety Report 12187910 (Version 1)
Quarter: 2016Q1

REPORT INFORMATION
  Report Type: Spontaneous
  Country: US (occurrence: US)
  Receive Date: 20160317
  Receipt Date: 20160317
  Transmission Date: 20160526
  Serious: Yes (Hospitalization)
  Sender: FDA-Public Use
  Company Number: US-SA-2016SA052025

PATIENT
  Age: 7 Year
  Sex: Female
  Weight: 26 kg

DRUGS (10)
  1. PRILOSEC [Concomitant]
     Active Substance: OMEPRAZOLE MAGNESIUM
  2. BENADRYL [Concomitant]
     Active Substance: DIPHENHYDRAMINE HYDROCHLORIDE
  3. NAPROXEN. [Concomitant]
     Active Substance: NAPROXEN
     Dosage: 125/5M
  4. CERDELGA [Suspect]
     Active Substance: ELIGLUSTAT
     Indication: GAUCHER^S DISEASE
     Route: 048
     Dates: start: 20160215
  5. CEREZYME [Concomitant]
     Active Substance: IMIGLUCERASE
     Dosage: FREQUNCY: PER TWO WEEKS
  6. SYNERA [Concomitant]
     Active Substance: LIDOCAINE\TETRACAINE
     Dosage: 70-70 MG PATCH
  7. SCOPOLAMINE [Concomitant]
     Active Substance: SCOPOLAMINE
     Dosage: 1.5 MG PATCH, TRANSDERM-SCOP
     Route: 062
  8. HYDROMORPHONE [Concomitant]
     Active Substance: HYDROMORPHONE
     Dosage: FREQUENCY: VARIESAPPROX. 1-2 TIMES DAY
  9. TYLENOL [Concomitant]
     Active Substance: ACETAMINOPHEN
     Dosage: NO MORE THAN ONCE A DAY
  10. SOLU-MEDROL [Concomitant]
     Active Substance: METHYLPREDNISOLONE SODIUM SUCCINATE

REACTIONS (3)
  - Fracture [Unknown]
  - Osteonecrosis [Unknown]
  - Pain in extremity [Unknown]
